FAERS Safety Report 7929145-6 (Version None)
Quarter: 2011Q4

REPORT INFORMATION
  Report Type: 
  Country: None (occurrence: None)
  Receive Date: 20111120
  Receipt Date: 20111111
  Transmission Date: 20120403
  Serious: Yes (Other)
  Sender: FDA-Public Use
  Company Number: US-AMGEN-USASP2011059680

PATIENT
  Age: 48 Year
  Sex: Male

DRUGS (6)
  1. ALLOPURINOL [Concomitant]
  2. TACROLIMUS [Concomitant]
  3. WHOLE BLOOD [Concomitant]
  4. PROCRIT [Suspect]
     Indication: RENAL TRANSPLANT
     Dosage: 30000 IU, QWK
     Dates: start: 20111019
  5. MYCOPHENOLATE MOFETIL [Concomitant]
     Dosage: UNK
  6. AZATHIOPRINE [Concomitant]

REACTIONS (4)
  - BONE MARROW TRANSPLANT [None]
  - DRUG INTERACTION [None]
  - DRUG INEFFECTIVE [None]
  - ANAEMIA [None]
